FAERS Safety Report 14323191 (Version 1)
Quarter: 2017Q4

REPORT INFORMATION
  Report Type: Spontaneous
  Country: US (occurrence: US)
  Receive Date: 20171226
  Receipt Date: 20171226
  Transmission Date: 20180321
  Serious: No
  Sender: FDA-Public Use
  Company Number: US-ZYDUS-016949

PATIENT
  Age: 44 Year
  Sex: Female

DRUGS (9)
  1. TIZANIDINE. [Suspect]
     Active Substance: TIZANIDINE
     Indication: MUSCLE SPASMS
     Route: 048
     Dates: start: 20170913, end: 20170926
  2. BUPROPION. [Concomitant]
     Active Substance: BUPROPION
     Indication: PRODUCT USED FOR UNKNOWN INDICATION
  3. ALPRAZOLAM. [Concomitant]
     Active Substance: ALPRAZOLAM
     Indication: PRODUCT USED FOR UNKNOWN INDICATION
  4. BUTALBITAL/CAFFEINE/PARACETAMOL [Concomitant]
     Indication: HEADACHE
  5. BIOTIN [Concomitant]
     Active Substance: BIOTIN
     Indication: PRODUCT USED FOR UNKNOWN INDICATION
  6. CHLORMEZANONE [Concomitant]
     Active Substance: CHLORMEZANONE
     Indication: SOMNOLENCE
  7. FAMOTIDINE. [Concomitant]
     Active Substance: FAMOTIDINE
     Indication: PRODUCT USED FOR UNKNOWN INDICATION
     Dosage: 800 MG/26.6 MG
  8. DIPHENHYDRAMINE. [Concomitant]
     Active Substance: DIPHENHYDRAMINE
     Indication: PRURITUS
  9. TAPENTADOL [Concomitant]
     Active Substance: TAPENTADOL
     Indication: PAIN

REACTIONS (7)
  - Somnolence [Unknown]
  - Feeling abnormal [Unknown]
  - Hallucination [Unknown]
  - Abnormal dreams [Unknown]
  - Palpitations [Unknown]
  - Tachycardia [Unknown]
  - Anxiety [Unknown]

NARRATIVE: CASE EVENT DATE: 201709
